FAERS Safety Report 18947411 (Version 2)
Quarter: 2022Q4

REPORT INFORMATION
  Report Type: Spontaneous
  Country: IT (occurrence: IT)
  Receive Date: 20210227
  Receipt Date: 20221129
  Transmission Date: 20230113
  Serious: Yes (Hospitalization, Other)
  Sender: FDA-Public Use
  Company Number: IT-AMGEN-ITASP2021027462

PATIENT
  Age: 53 Year
  Sex: Male

DRUGS (4)
  1. ADALIMUMAB [Suspect]
     Active Substance: ADALIMUMAB
     Indication: Uveitis
     Dosage: UNK
     Route: 065
  2. PREDNISOLONE [Concomitant]
     Active Substance: PREDNISOLONE
     Indication: Seronegative arthritis
     Dosage: 7.5 MILLIGRAM, QD
  3. PREDNISOLONE [Concomitant]
     Active Substance: PREDNISOLONE
     Dosage: 60 MILLIGRAM, QD
  4. METHOTREXATE [Concomitant]
     Active Substance: METHOTREXATE
     Indication: Seronegative arthritis
     Dosage: 15 MILLIGRAM, QWK

REACTIONS (6)
  - Retinal haemorrhage [Unknown]
  - Eye inflammation [Unknown]
  - Chorioretinal disorder [Unknown]
  - Vitritis [Unknown]
  - Cataract [Unknown]
  - Whipple^s disease [Unknown]
